FAERS Safety Report 15284376 (Version 1)
Quarter: 2018Q3

REPORT INFORMATION
  Report Type: Spontaneous
  Country: US (occurrence: US)
  Receive Date: 20180801
  Receipt Date: 20180801
  Transmission Date: 20181010
  Serious: Yes (Hospitalization)
  Sender: FDA-Public Use
  Company Number: None

PATIENT
  Age: 30 Year
  Sex: Female

DRUGS (1)
  1. PHENTERMINE/TOPIRAMATE [Suspect]
     Active Substance: PHENTERMINE HYDROCHLORIDE\TOPIRAMATE
     Indication: WEIGHT DECREASED
     Route: 048
     Dates: start: 20180429, end: 20180503

REACTIONS (5)
  - Mood swings [None]
  - Intentional self-injury [None]
  - Stress [None]
  - Aggression [None]
  - Alcohol use [None]

NARRATIVE: CASE EVENT DATE: 20180503
